FAERS Safety Report 9430139 (Version 2)
Quarter: 2014Q1

REPORT INFORMATION
  Report Type: Spontaneous
  Country: US (occurrence: US)
  Receive Date: 20130730
  Receipt Date: 20140226
  Transmission Date: 20141002
  Serious: Yes (Hospitalization, Other)
  Sender: FDA-Public Use
  Company Number: US-TEVA-421530USA

PATIENT
  Sex: Male

DRUGS (3)
  1. MOEXIPRIL [Suspect]
  2. METOPROLOL [Suspect]
  3. MAXIFED [Suspect]

REACTIONS (12)
  - Haemorrhagic stroke [Recovering/Resolving]
  - Loss of consciousness [Unknown]
  - Immobilisation prolonged [Unknown]
  - Blindness [Unknown]
  - Cardiac flutter [Unknown]
  - Cardiac failure congestive [Unknown]
  - Pneumothorax [Unknown]
  - Generalised oedema [Unknown]
  - Weight increased [Unknown]
  - Ageusia [Unknown]
  - Insomnia [Unknown]
  - Memory impairment [Not Recovered/Not Resolved]
